FAERS Safety Report 7427971-3 (Version None)
Quarter: 2011Q2

REPORT INFORMATION
  Report Type: 
  Country: None (occurrence: None)
  Receive Date: 20110421
  Receipt Date: 20110321
  Transmission Date: 20111010
  Serious: Yes (Other)
  Sender: FDA-Public Use
  Company Number: US-BAYER-2010-001810

PATIENT
  Age: 31 Year
  Sex: Female

DRUGS (6)
  1. PHENERGAN HCL [Concomitant]
     Route: 048
  2. YASMIN [Suspect]
     Indication: ACNE
  3. OCELLA [Suspect]
     Indication: PREMENSTRUAL SYNDROME
     Dosage: UNK
     Dates: start: 20050901, end: 20090901
  4. OCELLA [Suspect]
     Indication: ACNE
  5. XANAX [Concomitant]
     Route: 048
  6. YASMIN [Suspect]
     Indication: PREMENSTRUAL SYNDROME
     Dosage: UNK
     Dates: start: 20050901, end: 20090901

REACTIONS (3)
  - CHOLECYSTITIS CHRONIC [None]
  - GALLBLADDER INJURY [None]
  - BILIARY DYSKINESIA [None]
